FAERS Safety Report 8846023 (Version 1)
Quarter: 2012Q4

REPORT INFORMATION
  Report Type: 
  Country: GB (occurrence: GB)
  Receive Date: 20121017
  Receipt Date: 20121017
  Transmission Date: 20130627
  Serious: Yes (Life-Threatening)
  Sender: FDA-Public Use
  Company Number: GB-TEVA-364214ISR

PATIENT
  Age: 73 Year
  Sex: Male
  Weight: 88.5 kg

DRUGS (8)
  1. TRIMETHOPRIM [Suspect]
     Indication: INFECTION
     Dosage: 400 Milligram Daily;
     Route: 048
     Dates: start: 20120830, end: 20120925
  2. LEVOTHYROXINE [Concomitant]
  3. SIMVASTATIN [Concomitant]
  4. OMEPRAZOLE [Concomitant]
  5. ATENOLOL [Concomitant]
     Dosage: Stopped on admission
  6. LISINOPRIL [Concomitant]
     Dosage: stopped on admission
  7. GLYCERYL TRINITRATE [Concomitant]
  8. ASPIRIN COATED [Concomitant]

REACTIONS (5)
  - Renal failure acute [Recovered/Resolved]
  - Hyperkalaemia [Recovered/Resolved]
  - Cardiac arrest [Recovered/Resolved]
  - Bradycardia [Recovered/Resolved]
  - Presyncope [Recovered/Resolved]
